FAERS Safety Report 4746900-4 (Version None)
Quarter: 2005Q3

REPORT INFORMATION
  Report Type: 
  Country: None (occurrence: None)
  Receive Date: 20050817
  Receipt Date: 20050811
  Transmission Date: 20060218
  Serious: Yes (Life-Threatening, Hospitalization)
  Sender: FDA-Public Use
  Company Number: US-MERCK-0508USA02120

PATIENT
  Age: 57 Year
  Sex: Female

DRUGS (1)
  1. VYTORIN [Suspect]
     Indication: BLOOD CHOLESTEROL INCREASED
     Route: 048
     Dates: start: 20040901

REACTIONS (2)
  - ASTHMA [None]
  - BLOOD CREATINE PHOSPHOKINASE INCREASED [None]
